FAERS Safety Report 6977390-9 (Version None)
Quarter: 2010Q3

REPORT INFORMATION
  Report Type: 
  Country: None (occurrence: None)
  Receive Date: 20100910
  Receipt Date: 20100818
  Transmission Date: 20110219
  Serious: Yes (Hospitalization)
  Sender: FDA-Public Use
  Company Number: JP-AMGEN-QUU437014

PATIENT
  Age: 10 Year
  Sex: Male
  Weight: 28 kg

DRUGS (5)
  1. ENBREL [Suspect]
     Indication: JUVENILE ARTHRITIS
     Dosage: 0.4MG/KG
     Route: 058
  2. IBUPROFEN [Concomitant]
     Indication: JUVENILE ARTHRITIS
  3. METHOTREXATE [Concomitant]
     Indication: JUVENILE ARTHRITIS
  4. PREDNISOLONE [Concomitant]
     Indication: JUVENILE ARTHRITIS
  5. PREDNISOLONE [Concomitant]

REACTIONS (4)
  - ARTHRALGIA [None]
  - HERPES ZOSTER [None]
  - PYREXIA [None]
  - THERAPY REGIMEN CHANGED [None]
